FAERS Safety Report 8771545 (Version 1)
Quarter: 2012Q4

REPORT INFORMATION
  Report Type: 
  Country: US (occurrence: US)
  Receive Date: 20120905
  Receipt Date: 20120905
  Transmission Date: 20130627
  Serious: Yes (Hospitalization, Disabling, Other)
  Sender: FDA-Public Use
  Company Number: US-PFIZER INC-2012215232

PATIENT
  Age: 63 Year
  Sex: Female
  Weight: 97.51 kg

DRUGS (1)
  1. NEURONTIN [Suspect]
     Indication: NEUROPATHY PERIPHERAL
     Dosage: 600 mg, 4x/day
     Route: 048
     Dates: start: 2008, end: 201204

REACTIONS (7)
  - Sarcoma uterus [Not Recovered/Not Resolved]
  - Neoplasm [Not Recovered/Not Resolved]
  - Fibromyalgia [Unknown]
  - Drug ineffective [Unknown]
  - Malaise [Unknown]
  - Pain [Unknown]
  - Body height decreased [Unknown]
